FAERS Safety Report 5808278-4 (Version None)
Quarter: 2008Q3

REPORT INFORMATION
  Report Type: 
  Country: None (occurrence: None)
  Receive Date: 20080709
  Receipt Date: 20080630
  Transmission Date: 20090109
  Serious: Yes (Death, Hospitalization)
  Sender: FDA-Public Use
  Company Number: 2008SP004909

PATIENT
  Age: 51 Year
  Sex: Male
  Weight: 111.1313 kg

DRUGS (5)
  1. INTEGRILIN [Suspect]
     Indication: ACUTE MYOCARDIAL INFARCTION
     Dosage: IV
     Route: 042
     Dates: start: 20060321
  2. ASPIRIN [Suspect]
     Indication: MYOCARDIAL INFARCTION
     Dates: start: 20060321
  3. HEPARIN [Suspect]
     Indication: MYOCARDIAL INFARCTION
     Dates: start: 20060321
  4. PLAVIX [Suspect]
     Indication: MYOCARDIAL INFARCTION
     Dates: start: 20060321
  5. NITROGLYCERIN [Concomitant]

REACTIONS (12)
  - ARTERY DISSECTION [None]
  - BLEEDING TIME PROLONGED [None]
  - BRAIN HERNIATION [None]
  - BREATH SOUNDS ABNORMAL [None]
  - CARDIAC ARREST [None]
  - CARDIOVASCULAR DISORDER [None]
  - CEREBRAL HAEMATOMA [None]
  - CONVULSION [None]
  - HAEMORRHAGE [None]
  - PROCEDURAL COMPLICATION [None]
  - SUBARACHNOID HAEMORRHAGE [None]
  - UNRESPONSIVE TO STIMULI [None]
